FAERS Safety Report 7971689-5 (Version None)
Quarter: 2011Q4

REPORT INFORMATION
  Report Type: 
  Country: None (occurrence: None)
  Receive Date: 20111212
  Receipt Date: 20111208
  Transmission Date: 20120403
  Serious: Yes (Hospitalization)
  Sender: FDA-Public Use
  Company Number: US-ABBOTT-11P-163-0870941-00

PATIENT
  Sex: Male

DRUGS (3)
  1. HUMIRA [Suspect]
     Indication: PSORIASIS
     Dosage: (80MG)
     Route: 058
     Dates: start: 20110829, end: 20110829
  2. HUMIRA [Suspect]
     Dates: end: 20111103
  3. UNKNOWN MEDICATION [Concomitant]
     Indication: PRODUCT USED FOR UNKNOWN INDICATION

REACTIONS (4)
  - MALAISE [None]
  - PNEUMONIA [None]
  - RESPIRATORY TRACT CONGESTION [None]
  - DYSPNOEA [None]
